FAERS Safety Report 12229962 (Version 1)
Quarter: 2016Q1

REPORT INFORMATION
  Report Type: Spontaneous
  Country: US (occurrence: None)
  Receive Date: 20160331
  Receipt Date: 20160331
  Transmission Date: 20160526
  Serious: No
  Sender: FDA-Public Use
  Company Number: None

PATIENT
  Age: 77 Year
  Sex: Male
  Weight: 54.1 kg

DRUGS (2)
  1. AVIBACTAM/CEFTAZIDIME [Suspect]
     Active Substance: AVIBACTAM SODIUM\CEFTAZIDIME
     Route: 042
     Dates: start: 20160309, end: 20160317
  2. CEFTAZIDIME. [Suspect]
     Active Substance: CEFTAZIDIME
     Route: 042
     Dates: start: 20160306, end: 20160308

REACTIONS (7)
  - Cholestasis [None]
  - Metastases to stomach [None]
  - Transaminases increased [None]
  - Gallbladder disorder [None]
  - Hepatocellular injury [None]
  - Viral infection [None]
  - Fungal infection [None]

NARRATIVE: CASE EVENT DATE: 20160324
